FAERS Safety Report 4555230-5 (Version None)
Quarter: 2004Q4

REPORT INFORMATION
  Report Type: 
  Country: None (occurrence: None)
  Receive Date: 20041217
  Receipt Date: 20040830
  Transmission Date: 20050328
  Serious: No
  Sender: FDA-Public Use
  Company Number: 2004-BP-07473BP

PATIENT
  Age: 77 Year
  Sex: Female
  Weight: 55.3 kg

DRUGS (9)
  1. SPIRIVA [Suspect]
     Indication: CHRONIC OBSTRUCTIVE AIRWAYS DISEASE
     Dosage: 36 MCG (18 MCG, 2 PUFFS/DAY, IH
     Route: 055
     Dates: start: 20040825, end: 20040831
  2. ALBUTEROL [Concomitant]
  3. LIPITOR [Concomitant]
  4. QBID [Concomitant]
  5. ACETYLSALICYLIC ACID SRT [Concomitant]
  6. ZANTAC [Concomitant]
  7. COMBIVENT [Concomitant]
  8. XALATAN [Concomitant]
  9. RANTADINE [Concomitant]

REACTIONS (4)
  - DYSPEPSIA [None]
  - ERUCTATION [None]
  - GASTRITIS [None]
  - NAUSEA [None]
